FAERS Safety Report 4362187-9 (Version None)
Quarter: 2004Q2

REPORT INFORMATION
  Report Type: 
  Country: None (occurrence: None)
  Receive Date: 20040517
  Receipt Date: 20040413
  Transmission Date: 20050107
  Serious: Yes (Hospitalization)
  Sender: FDA-Public Use
  Company Number: PERIO-2004-0028

PATIENT
  Age: 65 Year
  Sex: Female
  Weight: 78.9259 kg

DRUGS (8)
  1. PERIOSTAT [Suspect]
     Indication: OSTEOPENIA
     Dosage: 20 MG, BID, PER ORAL
     Route: 048
     Dates: start: 20040105, end: 20040218
  2. PERIOSTAT [Suspect]
     Indication: OSTEOPENIA
     Dosage: 20 MG, BID, PER ORAL
     Route: 048
     Dates: start: 20040402
  3. CALCIUM 600 MG + VITAMIN D 200 IU / WALGREENS [Suspect]
     Indication: OSTEOPENIA
     Dosage: BID, PER ORAL
     Route: 048
     Dates: start: 20040105, end: 20040218
  4. CALCIUM 600 MG + VITAMIN D 200 IU / WALGREENS [Suspect]
     Indication: OSTEOPENIA
     Dosage: BID, PER ORAL
     Route: 048
     Dates: start: 20040402
  5. ASPIRIN [Concomitant]
  6. VITAMIN E [Concomitant]
  7. MULTIVITAMIN [Concomitant]
  8. CHEMOTHERAPY [Concomitant]

REACTIONS (9)
  - ABDOMINAL DISCOMFORT [None]
  - CATHETER RELATED COMPLICATION [None]
  - CATHETER SITE INFECTION [None]
  - COLLAPSE OF LUNG [None]
  - DEEP VEIN THROMBOSIS [None]
  - FUNGAL INFECTION [None]
  - NAUSEA [None]
  - NOSOCOMIAL INFECTION [None]
  - SUBCLAVIAN VEIN THROMBOSIS [None]
